FAERS Safety Report 9575716 (Version 1)
Quarter: 2013Q4

REPORT INFORMATION
  Report Type: Spontaneous
  Country: US (occurrence: US)
  Receive Date: 20131001
  Receipt Date: 20131001
  Transmission Date: 20140711
  Serious: No
  Sender: FDA-Public Use
  Company Number: US-AMGEN-USASP2013000028

PATIENT
  Age: 52 Year
  Sex: Female

DRUGS (13)
  1. ENBREL [Suspect]
     Indication: RHEUMATOID ARTHRITIS
     Dosage: 50 MG, QWK
     Route: 058
  2. VITAMIN B6 [Concomitant]
     Dosage: 250 MG, UNK
  3. FISH OIL [Concomitant]
     Dosage: UNK
  4. D3 [Concomitant]
     Dosage: 400 UNIT, UNK
  5. PRAMIPEXOLE [Concomitant]
     Dosage: 0.5 MG, UNK
  6. LOSARTAN POTASSIUM [Concomitant]
     Dosage: 25 MG, UNK
  7. VERAPAMIL [Concomitant]
     Dosage: 120 MG, UNK
  8. FOLIC ACID [Concomitant]
     Dosage: 1 MG, UNK
  9. METOPROLOL TARTRATE [Concomitant]
     Dosage: 25 MG, UNK
  10. JANUVIA [Concomitant]
     Dosage: 25 MG, UNK
  11. LEVOTHYROXINE [Concomitant]
     Dosage: 25 MUG, UNK
  12. OMEPRAZOLE [Concomitant]
     Dosage: 10 MG, UNK
  13. METFORMIN [Concomitant]
     Dosage: 500 MG, UNK

REACTIONS (5)
  - Injection site reaction [Unknown]
  - Injection site pruritus [Unknown]
  - Injection site swelling [Unknown]
  - Injection site discolouration [Unknown]
  - Influenza [Unknown]
